FAERS Safety Report 5321685-1 (Version None)
Quarter: 2007Q2

REPORT INFORMATION
  Report Type: 
  Country: None (occurrence: None)
  Receive Date: 20070510
  Receipt Date: 20070507
  Transmission Date: 20071010
  Serious: Yes (Other)
  Sender: FDA-Public Use
  Company Number: BR-ASTRAZENECA-2007UW10910

PATIENT
  Age: 41 Year
  Sex: Female
  Weight: 74 kg

DRUGS (2)
  1. SYMBICORT [Suspect]
     Indication: ASTHMA
     Dosage: 6/200 MCG
     Route: 055
     Dates: start: 20040601
  2. GARDAN TAB [Concomitant]
     Indication: EPILEPSY
     Route: 048
     Dates: start: 19990601

REACTIONS (1)
  - WEIGHT INCREASED [None]
